FAERS Safety Report 4363815-4 (Version None)
Quarter: 2004Q2

REPORT INFORMATION
  Report Type: 
  Country: None (occurrence: None)
  Receive Date: 20040521
  Receipt Date: 20040422
  Transmission Date: 20050107
  Serious: Yes (Other)
  Sender: FDA-Public Use
  Company Number: HQWYE578523APR04

PATIENT
  Sex: 0

DRUGS (1)
  1. NEUMEGA [Suspect]

REACTIONS (1)
  - BLINDNESS [None]
